FAERS Safety Report 23166723 (Version 2)
Quarter: 2023Q4

REPORT INFORMATION
  Report Type: Spontaneous
  Country: CA (occurrence: CA)
  Receive Date: 20231109
  Receipt Date: 20231122
  Transmission Date: 20240109
  Serious: Yes (Other)
  Sender: FDA-Public Use
  Company Number: CA-TEVA-2023-CA-2942182

PATIENT
  Age: 65 Year
  Sex: Female

DRUGS (7)
  1. CARBOPLATIN [Suspect]
     Active Substance: CARBOPLATIN
     Indication: Endometrial cancer stage IV
     Dosage: EVERY THREE WEEKS
     Route: 042
  2. PACLITAXEL [Suspect]
     Active Substance: PACLITAXEL
     Indication: Endometrial cancer stage IV
     Dosage: EVERY THREE WEEKS
     Route: 042
  3. LENVATINIB [Suspect]
     Active Substance: LENVATINIB
     Indication: Endometrial cancer stage IV
     Dosage: INITIAL
     Route: 065
  4. LENVATINIB [Suspect]
     Active Substance: LENVATINIB
     Dosage: POST RESUMING
     Route: 065
  5. LENVATINIB [Suspect]
     Active Substance: LENVATINIB
     Dosage: 14 MILLIGRAM DAILY; INITIAL DOSE DECREASE , ONCE A DAY
     Route: 065
  6. LENVATINIB [Suspect]
     Active Substance: LENVATINIB
     Dosage: 10 MILLIGRAM DAILY; FINAL DOSE , ONCE A DAY
     Route: 065
  7. PEMBROLIZUMAB [Concomitant]
     Active Substance: PEMBROLIZUMAB
     Indication: Endometrial cancer stage IV
     Route: 065

REACTIONS (2)
  - Oesophagitis [Recovered/Resolved]
  - Therapeutic product ineffective [Unknown]

NARRATIVE: CASE EVENT DATE: 20210201
